FAERS Safety Report 15082077 (Version 1)
Quarter: 2018Q2

REPORT INFORMATION
  Report Type: Report from Study
  Country: US (occurrence: US)
  Receive Date: 20180628
  Receipt Date: 20180628
  Transmission Date: 20180711
  Serious: Yes (Other)
  Sender: FDA-Public Use
  Company Number: US-ROCHE-2144080

PATIENT
  Age: 29 Year
  Sex: Male
  Weight: 57.2 kg

DRUGS (2)
  1. LEVOXYL [Concomitant]
     Active Substance: LEVOTHYROXINE SODIUM
     Dosage: ONGOING: YES
     Route: 048
  2. NUTROPIN AQ [Suspect]
     Active Substance: SOMATROPIN
     Indication: HYPOPITUITARISM
     Dosage: ONGOING: YES
     Route: 058

REACTIONS (9)
  - Insulin-like growth factor increased [Unknown]
  - Extradural haematoma [Unknown]
  - Hypothyroidism [Unknown]
  - Hyperglycaemia [Unknown]
  - Blood glucose increased [Unknown]
  - Blood creatinine increased [Unknown]
  - Ophthalmic herpes zoster [Unknown]
  - Monocyte count increased [Unknown]
  - Blood urea increased [Unknown]

NARRATIVE: CASE EVENT DATE: 20161222
